FAERS Safety Report 18321501 (Version 1)
Quarter: 2020Q3

REPORT INFORMATION
  Report Type: Spontaneous
  Country: US (occurrence: US)
  Receive Date: 20200928
  Receipt Date: 20200928
  Transmission Date: 20201103
  Serious: Yes (Other)
  Sender: FDA-Public Use
  Company Number: US-PFIZER INC-2020369512

PATIENT
  Age: 79 Year
  Sex: Female
  Weight: 50.52 kg

DRUGS (6)
  1. REMODULIN [Suspect]
     Active Substance: TREPROSTINIL
     Dosage: 0.039 UG/KG, (0.039 ?G/KG, CONTINUING, IV DRIP)
     Route: 041
  2. REMODULIN [Suspect]
     Active Substance: TREPROSTINIL
     Dosage: 0.04 UG/KG, (0.040 ?G/KG, CONTINUING, IV DRIP)
     Route: 041
  3. REMODULIN [Suspect]
     Active Substance: TREPROSTINIL
     Dosage: 0.036 UG/KG, (0.036 ?G/KG, CONTINUING, IV DRIP)
     Route: 041
  4. OPSUMIT [Concomitant]
     Active Substance: MACITENTAN
     Dosage: UNK
  5. SILDENAFIL CITRATE. [Suspect]
     Active Substance: SILDENAFIL CITRATE
     Dosage: UNK
     Dates: start: 2020, end: 2020
  6. REMODULIN [Suspect]
     Active Substance: TREPROSTINIL
     Indication: PULMONARY ARTERIAL HYPERTENSION
     Dosage: UNK
     Route: 041
     Dates: start: 20191218

REACTIONS (10)
  - Blood pressure decreased [Unknown]
  - Heart rate increased [Unknown]
  - Stress [Unknown]
  - Catheter site pain [Unknown]
  - Visual impairment [Unknown]
  - Dyspnoea [Unknown]
  - Hypoacusis [Unknown]
  - Headache [Unknown]
  - Blood pressure fluctuation [Unknown]
  - Dizziness [Unknown]

NARRATIVE: CASE EVENT DATE: 2020
